FAERS Safety Report 11459020 (Version 2)
Quarter: 2015Q4

REPORT INFORMATION
  Report Type: Report from Study
  Country: US (occurrence: US)
  Receive Date: 20150904
  Receipt Date: 20151027
  Transmission Date: 20160304
  Serious: Yes (Other)
  Sender: FDA-Public Use
  Company Number: US-AMGEN-USASP2015089148

PATIENT
  Age: 33 Year
  Sex: Female

DRUGS (1)
  1. ENBREL [Suspect]
     Active Substance: ETANERCEPT
     Indication: PSORIASIS
     Dosage: 50 MG, QWK
     Route: 065
     Dates: start: 20150612

REACTIONS (4)
  - Drug effect incomplete [Unknown]
  - Back pain [Unknown]
  - Injection site reaction [Unknown]
  - Joint abscess [Unknown]

NARRATIVE: CASE EVENT DATE: 2015
